FAERS Safety Report 10995049 (Version 4)
Quarter: 2015Q4

REPORT INFORMATION
  Report Type: Spontaneous
  Country: US (occurrence: US)
  Receive Date: 20150407
  Receipt Date: 20151012
  Transmission Date: 20160304
  Serious: No
  Sender: FDA-Public Use
  Company Number: US-GLAXOSMITHKLINE-US2015030473

PATIENT
  Age: 37 Year
  Sex: Female
  Weight: 61.22 kg

DRUGS (4)
  1. YELLOW FEVER VACCINE NOS [Suspect]
     Active Substance: YELLOW FEVER VIRUS STRAIN 17D-204 LIVE ANTIGEN
     Indication: PROPHYLAXIS
     Route: 058
     Dates: start: 20140711
  2. TYPHOID VACCINE [Suspect]
     Active Substance: TYPHOID VACCINE
     Indication: PROPHYLAXIS
     Route: 065
     Dates: start: 20140711
  3. FOLIC ACID. [Concomitant]
     Active Substance: FOLIC ACID
  4. MALARONE [Suspect]
     Active Substance: ATOVAQUONE\PROGUANIL HYDROCHLORIDE
     Indication: MALARIA PROPHYLAXIS
     Dosage: 1 DF, QD
     Route: 048
     Dates: start: 20141115, end: 20141130

REACTIONS (2)
  - Exposure during pregnancy [Unknown]
  - Live birth [Unknown]

NARRATIVE: CASE EVENT DATE: 20150724
